FAERS Safety Report 14497044 (Version 4)
Quarter: 2018Q2

REPORT INFORMATION
  Report Type: Spontaneous
  Country: SI (occurrence: SK)
  Receive Date: 20180207
  Receipt Date: 20180627
  Transmission Date: 20180711
  Serious: Yes (Hospitalization)
  Sender: FDA-Public Use
  Company Number: SK-MYLANLABS-2018M1007478

PATIENT
  Age: 80 Year
  Sex: Male

DRUGS (9)
  1. RAMIPRIL. [Suspect]
     Active Substance: RAMIPRIL
     Indication: DIABETES MELLITUS
     Dosage: 5 MG, UNK
     Route: 048
  2. METFORMIN [Suspect]
     Active Substance: METFORMIN HYDROCHLORIDE
     Indication: ATRIAL FIBRILLATION
     Dosage: UNK
  3. METFORMIN [Suspect]
     Active Substance: METFORMIN HYDROCHLORIDE
     Indication: DIABETES MELLITUS
  4. METFORMIN [Suspect]
     Active Substance: METFORMIN HYDROCHLORIDE
     Indication: HYPERTENSION
  5. ASPIRIN. [Suspect]
     Active Substance: ASPIRIN
     Indication: ATRIAL FIBRILLATION
  6. RAMIPRIL. [Suspect]
     Active Substance: RAMIPRIL
     Indication: ATRIAL FIBRILLATION
  7. RAMIPRIL. [Suspect]
     Active Substance: RAMIPRIL
     Indication: HYPERTENSION
  8. ASPIRIN. [Suspect]
     Active Substance: ASPIRIN
     Indication: DIABETES MELLITUS
     Dosage: 300 MG, UNK
  9. ASPIRIN. [Suspect]
     Active Substance: ASPIRIN
     Indication: HYPERTENSION

REACTIONS (4)
  - Product use in unapproved indication [Unknown]
  - Embolic stroke [Unknown]
  - Hemiplegia [Unknown]
  - Basilar artery thrombosis [Recovered/Resolved]
